FAERS Safety Report 4651577-2 (Version None)
Quarter: 2005Q2

REPORT INFORMATION
  Report Type: 
  Country: None (occurrence: None)
  Receive Date: 20050502
  Receipt Date: 20050422
  Transmission Date: 20051028
  Serious: Yes (Hospitalization, Other)
  Sender: FDA-Public Use
  Company Number: 2003040430

PATIENT
  Sex: Male
  Weight: 100 kg

DRUGS (6)
  1. NIFEDIPINE [Suspect]
     Indication: HYPERTENSION
     Dosage: 10 MG
  2. PROCARDIA XL [Suspect]
     Indication: HYPERTENSION
     Dosage: 30 MG (DAILY), ORAL
     Route: 048
  3. ATENOLOL [Concomitant]
  4. CLONIDINE [Concomitant]
  5. CHLORTALIDONE (CHLORTALIDONE) [Concomitant]
  6. HYDRALAZINE HYDROCHLORIDE (HYDRALAZINE HYDROCHLORIDE) [Concomitant]

REACTIONS (8)
  - ARTHROPOD BITE [None]
  - BLOOD PRESSURE FLUCTUATION [None]
  - CHOLECYSTECTOMY [None]
  - DRUG INEFFECTIVE [None]
  - ERYTHEMA [None]
  - OEDEMA PERIPHERAL [None]
  - PAIN IN EXTREMITY [None]
  - SKIN ULCER [None]
